FAERS Safety Report 11855797 (Version 1)
Quarter: 2015Q4

REPORT INFORMATION
  Report Type: Spontaneous
  Country: US (occurrence: None)
  Receive Date: 20151218
  Receipt Date: 20151218
  Transmission Date: 20160305
  Serious: Yes (Disabling)
  Sender: FDA-Public Use
  Company Number: None

PATIENT
  Age: 53 Year
  Sex: Female
  Weight: 99.79 kg

DRUGS (22)
  1. LITHIUM LITHIUM CARBONATE 300 MGS [Suspect]
     Active Substance: LITHIUM CARBONATE
     Indication: BIPOLAR II DISORDER
     Route: 048
     Dates: start: 1995, end: 2014
  2. NORVASC [Concomitant]
     Active Substance: AMLODIPINE BESYLATE
  3. BABY ASPIRIN [Concomitant]
     Active Substance: ASPIRIN
  4. LATUDA [Concomitant]
     Active Substance: LURASIDONE HYDROCHLORIDE
  5. FIBERCON [Concomitant]
     Active Substance: CALCIUM POLYCARBOPHIL
  6. PROAIR HFA [Concomitant]
     Active Substance: ALBUTEROL SULFATE
  7. LIPITOR [Concomitant]
     Active Substance: ATORVASTATIN CALCIUM
  8. VITAMIN D [Concomitant]
     Active Substance: CHOLECALCIFEROL
  9. BABY ASPIRIN [Suspect]
     Active Substance: ASPIRIN
  10. MULTIPLE VITAMINS [Concomitant]
     Active Substance: VITAMINS
  11. TRAZODONE [Concomitant]
     Active Substance: TRAZODONE HYDROCHLORIDE
  12. CYMBALTA [Concomitant]
     Active Substance: DULOXETINE HYDROCHLORIDE
  13. VITAMINS [Concomitant]
     Active Substance: VITAMINS
  14. OLANGZA [Concomitant]
  15. AMBIEN [Concomitant]
     Active Substance: ZOLPIDEM TARTRATE
  16. DOCUSATE SODIUM. [Concomitant]
     Active Substance: DOCUSATE SODIUM
  17. FLONASE [Concomitant]
     Active Substance: FLUTICASONE PROPIONATE
  18. CLARITIN [Concomitant]
     Active Substance: LORATADINE
  19. AMARYL [Concomitant]
     Active Substance: GLIMEPIRIDE
  20. LOVASA [Concomitant]
  21. ZANAFLEX [Concomitant]
     Active Substance: TIZANIDINE HYDROCHLORIDE
  22. NEURONTIN [Concomitant]
     Active Substance: GABAPENTIN

REACTIONS (2)
  - Acute kidney injury [None]
  - Renal disorder [None]

NARRATIVE: CASE EVENT DATE: 20141216
